FAERS Safety Report 7095131-4 (Version None)
Quarter: 2010Q4

REPORT INFORMATION
  Report Type: 
  Country: None (occurrence: None)
  Receive Date: 20101111
  Receipt Date: 20101101
  Transmission Date: 20110411
  Serious: No
  Sender: FDA-Public Use
  Company Number: 2009BI003582

PATIENT
  Age: 58 Year
  Sex: Female

DRUGS (1)
  1. TYSABRI [Suspect]
     Indication: MULTIPLE SCLEROSIS
     Route: 042
     Dates: start: 20070827

REACTIONS (6)
  - BACK PAIN [None]
  - FALL [None]
  - FATIGUE [None]
  - HEAD INJURY [None]
  - MEMORY IMPAIRMENT [None]
  - VISION BLURRED [None]
